FAERS Safety Report 4467476-5 (Version None)
Quarter: 2004Q4

REPORT INFORMATION
  Report Type: 
  Country: None (occurrence: None)
  Receive Date: 20041006
  Receipt Date: 20041004
  Transmission Date: 20050328
  Serious: Yes (Other)
  Sender: FDA-Public Use
  Company Number: NZ-MERCK-0410NZL00009

PATIENT
  Age: 50 Year
  Sex: Female

DRUGS (4)
  1. BENDROFLUMETHIAZIDE [Concomitant]
     Route: 065
  2. ENALAPRIL MALEATE [Concomitant]
     Route: 065
  3. VIOXX [Suspect]
     Indication: OSTEOARTHRITIS
     Route: 048
     Dates: start: 20000101
  4. SIMVASTATIN [Concomitant]
     Route: 065

REACTIONS (1)
  - MYOCARDIAL INFARCTION [None]
